FAERS Safety Report 13928817 (Version 12)
Quarter: 2020Q1

REPORT INFORMATION
  Report Type: Report from Study
  Country: FR (occurrence: FR)
  Receive Date: 20170901
  Receipt Date: 20200206
  Transmission Date: 20200409
  Serious: Yes (Death, Hospitalization, Other)
  Sender: FDA-Public Use
  Company Number: FR-BRISTOL-MYERS SQUIBB COMPANY-BMS-2017-077745

PATIENT
  Age: 69 Year
  Sex: Male

DRUGS (10)
  1. NIVOLUMAB [Suspect]
     Active Substance: NIVOLUMAB
     Indication: LUNG NEOPLASM MALIGNANT
     Dosage: 295 MG, Q2WK
     Route: 042
     Dates: start: 20170420, end: 20170630
  2. PRAVASTATIN. [Concomitant]
     Active Substance: PRAVASTATIN
     Indication: PRODUCT USED FOR UNKNOWN INDICATION
     Dosage: 20 MILLIGRAM, QD
     Route: 065
  3. PRAVASTATINE [PRAVASTATIN] [Concomitant]
     Active Substance: PRAVASTATIN
     Indication: PRODUCT USED FOR UNKNOWN INDICATION
     Dosage: 20 MG/DAY
     Route: 065
  4. DAFALGAN [Concomitant]
     Active Substance: ACETAMINOPHEN
     Indication: PRODUCT USED FOR UNKNOWN INDICATION
     Dosage: 1 G, 3/DAY
     Route: 065
  5. INNOHEP [Concomitant]
     Active Substance: TINZAPARIN SODIUM
     Indication: PRODUCT USED FOR UNKNOWN INDICATION
     Dosage: 18000 U, UNK
     Route: 058
  6. LANSOPRAZOLE. [Concomitant]
     Active Substance: LANSOPRAZOLE
     Indication: PRODUCT USED FOR UNKNOWN INDICATION
     Dosage: 30 MG, QD
     Route: 065
  7. ACTISKENAN [Concomitant]
     Active Substance: MORPHINE SULFATE
     Indication: PRODUCT USED FOR UNKNOWN INDICATION
     Dosage: 5 MG, 6/DAY
     Route: 065
  8. OMEPRAZOLE. [Concomitant]
     Active Substance: OMEPRAZOLE
     Indication: PRODUCT USED FOR UNKNOWN INDICATION
     Dosage: 20 MG, UNK
     Route: 065
  9. PEMETREXED DISODIUM [Suspect]
     Active Substance: PEMETREXED DISODIUM
     Indication: LUNG NEOPLASM MALIGNANT
     Route: 065
  10. TRAMADOL. [Concomitant]
     Active Substance: TRAMADOL
     Indication: PRODUCT USED FOR UNKNOWN INDICATION
     Dosage: 50 MG, Q6H
     Route: 065

REACTIONS (14)
  - Medical device repositioning [Recovered/Resolved]
  - Tachypnoea [Fatal]
  - Febrile bone marrow aplasia [Fatal]
  - Renal failure [Unknown]
  - Pyrexia [Unknown]
  - Diarrhoea [Fatal]
  - Clostridium difficile colitis [Fatal]
  - Respiratory tract congestion [Fatal]
  - Asthenia [Not Recovered/Not Resolved]
  - Hypernatraemia [Unknown]
  - Dehydration [Unknown]
  - Cancer pain [Not Recovered/Not Resolved]
  - Malignant neoplasm progression [Unknown]
  - Vomiting [Unknown]

NARRATIVE: CASE EVENT DATE: 20170505
